FAERS Safety Report 17798567 (Version 3)
Quarter: 2020Q2

REPORT INFORMATION
  Report Type: Spontaneous
  Country: US (occurrence: US)
  Receive Date: 20200518
  Receipt Date: 20200626
  Transmission Date: 20200714
  Serious: Yes (Other)
  Sender: FDA-Public Use
  Company Number: US-PFIZER INC-2020195744

PATIENT
  Age: 65 Year

DRUGS (1)
  1. ALPRAZOLAM. [Suspect]
     Active Substance: ALPRAZOLAM
     Indication: SLEEP APNOEA SYNDROME
     Dosage: 0.5 MG, 2X/DAY
     Dates: start: 2011

REACTIONS (10)
  - Off label use [Unknown]
  - Infection susceptibility increased [Unknown]
  - Auditory disorder [Unknown]
  - Plasma cell myeloma [Unknown]
  - Reaction to excipient [Unknown]
  - Drug hypersensitivity [Unknown]
  - Anxiety [Unknown]
  - Psychomotor hyperactivity [Unknown]
  - Brain hypoxia [Unknown]
  - Drug ineffective for unapproved indication [Unknown]
